FAERS Safety Report 24170295 (Version 1)
Quarter: 2024Q3

REPORT INFORMATION
  Report Type: Spontaneous
  Country: PH (occurrence: PH)
  Receive Date: 20240803
  Receipt Date: 20240803
  Transmission Date: 20241016
  Serious: Yes (Other)
  Sender: ACCORD
  Company Number: PH-SA-2024SA107774

PATIENT
  Age: 33 Year
  Sex: Female

DRUGS (2)
  1. DOCETAXEL [Suspect]
     Active Substance: DOCETAXEL\DOCETAXEL ANHYDROUS
     Indication: Follicular dendritic cell sarcoma
     Dosage: ADMINISTERED DAY 8 OF A 21-DAY CYCLE
  2. GEMCITABINE [Suspect]
     Active Substance: GEMCITABINE
     Indication: Follicular dendritic cell sarcoma
     Dosage: ADMINISTERED ON DAYS 1 AND 8

REACTIONS (4)
  - Anaemia [Unknown]
  - Alopecia [Unknown]
  - Leukopenia [Unknown]
  - Off label use [Unknown]
